FAERS Safety Report 6945311 (Version 2)
Quarter: 2013Q3

REPORT INFORMATION
  Report Type: Spontaneous
  Country: FR (occurrence: FR)
  Receive Date: 20090319
  Receipt Date: 20130903
  Transmission Date: 20140515
  Serious: Yes (Hospitalization)
  Sender: FDA-Public Use
  Company Number: FR-BRISTOL-MYERS SQUIBB COMPANY-14546329

PATIENT
  Age: 86 Year
  Sex: Male

DRUGS (3)
  1. HYDREA CAPS 500 MG [Suspect]
     Indication: POLYCYTHAEMIA VERA
     Dosage: 05DEC08-14JAN09(500 MG)1 AND BETWEEN 01JAN09-24JAN09(4 TABS) 25-JAN-09 DEF WITHDRAWN
     Route: 048
     Dates: start: 20081205, end: 20090124
  2. AUGMENTIN [Concomitant]
     Indication: LUNG DISORDER
     Route: 048
     Dates: start: 20090103, end: 20090107
  3. TAVANIC [Concomitant]
     Indication: LUNG DISORDER
     Route: 048
     Dates: start: 20090108, end: 20090123

REACTIONS (5)
  - Interstitial lung disease [Unknown]
  - Pyrexia [Recovered/Resolved]
  - Tremor [Recovered/Resolved]
  - Hypersensitivity [Recovered/Resolved]
  - Pulmonary fibrosis [Recovered/Resolved with Sequelae]
